FAERS Safety Report 4532423-4 (Version None)
Quarter: 2004Q4

REPORT INFORMATION
  Report Type: 
  Country: None (occurrence: None)
  Receive Date: 20041217
  Receipt Date: 20041213
  Transmission Date: 20050328
  Serious: Yes (Hospitalization)
  Sender: FDA-Public Use
  Company Number: 200413377GDS

PATIENT
  Age: 63 Year
  Sex: Male

DRUGS (4)
  1. ASPIRIN [Suspect]
     Dosage: 325 MG, TOTAL DAILY
  2. 3-HYDROXY-3-METHYLGLUTARYL COENZYME A (HMG-COA) [Concomitant]
  3. ANGIOTENSIN-CONVERTING ENZYME INHIBITOR [Concomitant]
  4. DIURETIC [Concomitant]

REACTIONS (8)
  - ACUTE CORONARY SYNDROME [None]
  - BLOOD CREATINE PHOSPHOKINASE INCREASED [None]
  - BLOOD CREATINE PHOSPHOKINASE MB INCREASED [None]
  - CORONARY ARTERY OCCLUSION [None]
  - CORONARY ARTERY THROMBOSIS [None]
  - THERAPEUTIC PRODUCT INEFFECTIVE [None]
  - TROPONIN I INCREASED [None]
  - VASCULAR GRAFT OCCLUSION [None]
